FAERS Safety Report 4642589-3 (Version None)
Quarter: 2005Q2

REPORT INFORMATION
  Report Type: 
  Country: None (occurrence: None)
  Receive Date: 20050420
  Receipt Date: 20050412
  Transmission Date: 20051028
  Serious: Yes (Other)
  Sender: FDA-Public Use
  Company Number: 106342ISR

PATIENT
  Age: 40 Year
  Sex: Female

DRUGS (1)
  1. GLATIRAMER ACETATE [Suspect]
     Indication: MULTIPLE SCLEROSIS
     Dosage: 20 MILLIGRAM SUBCUTANEOUS
     Route: 058
     Dates: start: 20021001

REACTIONS (1)
  - GLOMERULONEPHRITIS MEMBRANOUS [None]
